FAERS Safety Report 8796605 (Version 2)
Quarter: 2018Q3

REPORT INFORMATION
  Report Type: Spontaneous
  Country: US (occurrence: US)
  Receive Date: 20120919
  Receipt Date: 20180724
  Transmission Date: 20181010
  Serious: Yes (Congenital Anomaly, Other)
  Sender: FDA-Public Use
  Company Number: US-009507513-1007USA02118B1

PATIENT
  Age: 1 Day
  Sex: Male

DRUGS (9)
  1. ISENTRESS [Suspect]
     Active Substance: RALTEGRAVIR POTASSIUM
     Route: 064
     Dates: start: 20091217
  2. TRUVADA [Suspect]
     Active Substance: EMTRICITABINE\TENOFOVIR DISOPROXIL FUMARATE
     Dosage: 1 DF, QD
     Route: 064
  3. REYATAZ [Suspect]
     Active Substance: ATAZANAVIR SULFATE
     Dosage: 300 MG, QD
     Route: 064
     Dates: start: 20090924, end: 20091015
  4. COMBIVIR [Suspect]
     Active Substance: LAMIVUDINE\ZIDOVUDINE
     Dosage: 2 DF, QD
     Route: 064
     Dates: start: 20090728, end: 20090924
  5. NORVIR [Suspect]
     Active Substance: RITONAVIR
     Route: 064
     Dates: start: 20091015
  6. KALETRA [Suspect]
     Active Substance: LOPINAVIR\RITONAVIR
     Dosage: 4 DF, QD
     Route: 064
     Dates: start: 20090728, end: 20090924
  7. VIREAD [Suspect]
     Active Substance: TENOFOVIR DISOPROXIL FUMARATE
     Route: 064
     Dates: start: 20091015
  8. LEXIVA [Suspect]
     Active Substance: FOSAMPRENAVIR CALCIUM
     Route: 064
     Dates: start: 20091015, end: 20091217
  9. EPIVIR [Suspect]
     Active Substance: LAMIVUDINE
     Route: 064
     Dates: start: 20090924

REACTIONS (8)
  - Hypocalcaemia [Unknown]
  - Foetal exposure during pregnancy [Unknown]
  - Hyponatraemia [Unknown]
  - Adrenogenital syndrome [Unknown]
  - Congenital hydronephrosis [Unknown]
  - Ultrasound kidney abnormal [Unknown]
  - Adrenogenital syndrome [Unknown]
  - Pyelocaliectasis [Unknown]

NARRATIVE: CASE EVENT DATE: 20100308
